FAERS Safety Report 14094685 (Version 1)
Quarter: 2017Q4

REPORT INFORMATION
  Report Type: Spontaneous
  Country: US (occurrence: US)
  Receive Date: 20171016
  Receipt Date: 20171016
  Transmission Date: 20180321
  Serious: Yes (Other)
  Sender: FDA-Public Use
  Company Number: US-AMGEN-USASP2017038858

PATIENT
  Age: 57 Year
  Sex: Female
  Weight: 53.52 kg

DRUGS (7)
  1. PROLIA [Suspect]
     Active Substance: DENOSUMAB
     Indication: OSTEOPOROSIS POSTMENOPAUSAL
     Dosage: 60 MG, Q6MO
     Route: 058
     Dates: start: 20170306
  2. SUMO [Concomitant]
     Dosage: UNK UNK, QD
  3. NORCO [Concomitant]
     Active Substance: ACETAMINOPHEN\HYDROCODONE BITARTRATE
     Dosage: UNK UNK, QD
  4. XAMEX [Concomitant]
     Dosage: UNK UNK, QD
  5. TUMS [Concomitant]
     Active Substance: CALCIUM CARBONATE
  6. VITAMIN D [Concomitant]
     Active Substance: CHOLECALCIFEROL
     Dosage: 2000 IU, QD
     Dates: start: 2014
  7. PROLIA [Suspect]
     Active Substance: DENOSUMAB
     Indication: OSTEOPENIA

REACTIONS (10)
  - Pain in extremity [Unknown]
  - Growing pains [Unknown]
  - Blood glucose increased [Unknown]
  - Back pain [Unknown]
  - Off label use [Unknown]
  - Blood calcium decreased [Unknown]
  - Arthralgia [Not Recovered/Not Resolved]
  - Bursitis [Unknown]
  - Toothache [Unknown]
  - Protein total decreased [Unknown]

NARRATIVE: CASE EVENT DATE: 20170307
